FAERS Safety Report 23772313 (Version 1)
Quarter: 2024Q2

REPORT INFORMATION
  Report Type: Spontaneous
  Country: US (occurrence: US)
  Receive Date: 20240423
  Receipt Date: 20240423
  Transmission Date: 20240716
  Serious: No
  Sender: FDA-Public Use
  Company Number: US-Mission Pharmacal Company-2155895

PATIENT
  Age: 71 Year
  Sex: Male

DRUGS (21)
  1. THIOLA EC [Suspect]
     Active Substance: TIOPRONIN
     Indication: Cystinuria
     Route: 048
     Dates: start: 20191001
  2. ALLOPURINOL [Concomitant]
     Active Substance: ALLOPURINOL
  3. JARDIANCE [Concomitant]
     Active Substance: EMPAGLIFLOZIN
  4. GABAPENTIN [Concomitant]
     Active Substance: GABAPENTIN
  5. VITAMIN B12 [Concomitant]
     Active Substance: CYANOCOBALAMIN
  6. ENTRESTO [Concomitant]
     Active Substance: SACUBITRIL\VALSARTAN
  7. BRILINTA [Concomitant]
     Active Substance: TICAGRELOR
  8. IMDUR [Concomitant]
     Active Substance: ISOSORBIDE MONONITRATE
  9. ALDACTONE [Concomitant]
     Active Substance: SPIRONOLACTONE
  10. BUMEX [Concomitant]
     Active Substance: BUMETANIDE
  11. LIPITOR [Concomitant]
     Active Substance: ATORVASTATIN CALCIUM
  12. FOLIC ACID [Concomitant]
     Active Substance: FOLIC ACID
  13. MAGNESIUM OXIDE [Concomitant]
     Active Substance: MAGNESIUM OXIDE
  14. HUMALOG [Concomitant]
     Active Substance: INSULIN LISPRO
  15. PRILOSEC [Concomitant]
     Active Substance: OMEPRAZOLE MAGNESIUM
  16. LANTUS [Concomitant]
     Active Substance: INSULIN GLARGINE
  17. METFORMIN [Concomitant]
     Active Substance: METFORMIN HYDROCHLORIDE
  18. ASPIRIN [Concomitant]
     Active Substance: ASPIRIN
  19. UROCIT-K [Concomitant]
     Active Substance: POTASSIUM CITRATE
     Route: 048
  20. ALLEGRA [Concomitant]
     Active Substance: FEXOFENADINE HYDROCHLORIDE
  21. BISOPROLOL. [Concomitant]
     Active Substance: BISOPROLOL FUMARATE

REACTIONS (1)
  - Drug ineffective [Unknown]
